FAERS Safety Report 26052979 (Version 1)
Quarter: 2025Q4

REPORT INFORMATION
  Report Type: Spontaneous
  Country: US (occurrence: US)
  Receive Date: 20251117
  Receipt Date: 20251117
  Transmission Date: 20260119
  Serious: No
  Sender: MYLAN
  Company Number: US-MYLANLABS-2025M1094877

PATIENT
  Sex: Male

DRUGS (4)
  1. CYSTAGON [Suspect]
     Active Substance: CYSTEAMINE BITARTRATE
     Indication: Cystinosis
     Dosage: 250 MILLIGRAM, QD (DAILY)
     Dates: start: 202510
  2. CYSTAGON [Suspect]
     Active Substance: CYSTEAMINE BITARTRATE
     Dosage: 250 MILLIGRAM, QD (DAILY)
     Route: 048
     Dates: start: 202510
  3. CYSTAGON [Suspect]
     Active Substance: CYSTEAMINE BITARTRATE
     Dosage: 250 MILLIGRAM, QD (DAILY)
     Route: 048
     Dates: start: 202510
  4. CYSTAGON [Suspect]
     Active Substance: CYSTEAMINE BITARTRATE
     Dosage: 250 MILLIGRAM, QD (DAILY)
     Dates: start: 202510

REACTIONS (1)
  - Vomiting [Unknown]
